FAERS Safety Report 7352214-9 (Version None)
Quarter: 2011Q1

REPORT INFORMATION
  Report Type: 
  Country: None (occurrence: None)
  Receive Date: 20110315
  Receipt Date: 20110308
  Transmission Date: 20110831
  Serious: Yes (Hospitalization)
  Sender: FDA-Public Use
  Company Number: FR-BAYER-2011-012248

PATIENT
  Sex: Male
  Weight: 53 kg

DRUGS (9)
  1. NEXAVAR [Suspect]
     Indication: HEPATIC NEOPLASM MALIGNANT
     Dosage: 800 MG, QD
     Route: 048
     Dates: start: 20100122, end: 20100718
  2. APIDRA [Concomitant]
     Dosage: 100 U/ML
     Dates: start: 20080101
  3. NEXIUM [Concomitant]
     Dosage: DAILY DOSE 40 MG
     Dates: start: 20090101
  4. NEXIUM [Concomitant]
     Dosage: DAILY DOSE 75 MG
     Dates: start: 20091023
  5. LANTUS [Concomitant]
     Indication: TYPE 2 DIABETES MELLITUS
     Dosage: 100 UI/ML
     Dates: start: 20080101
  6. ATARAX [Concomitant]
     Indication: ANXIETY
     Dosage: DAILY DOSE 50 MG
     Route: 048
     Dates: start: 20110217
  7. NEXAVAR [Suspect]
     Dosage: 400 MG, QD
     Dates: start: 20100902, end: 20110206
  8. LEXOMIL [Concomitant]
     Dosage: 6 MG, QD
  9. TOPALGIC [SUPROFEN] [Concomitant]
     Dosage: DAILY DOSE 200 MG
     Route: 048
     Dates: start: 20110207

REACTIONS (3)
  - ASCITES [None]
  - ENCEPHALOPATHY [None]
  - AGITATION [None]
